FAERS Safety Report 15760987 (Version 1)
Quarter: 2018Q4

REPORT INFORMATION
  Report Type: Spontaneous
  Country: US (occurrence: US)
  Receive Date: 20181226
  Receipt Date: 20181226
  Transmission Date: 20190205
  Serious: No
  Sender: FDA-Public Use
  Company Number: US-PFIZER INC-2018520919

PATIENT
  Age: 59 Year
  Sex: Male
  Weight: 99.79 kg

DRUGS (2)
  1. TIKOSYN [Suspect]
     Active Substance: DOFETILIDE
     Indication: ATRIAL FIBRILLATION
     Dosage: UNK
     Dates: start: 201504
  2. DOFETILIDE. [Interacting]
     Active Substance: DOFETILIDE
     Indication: ATRIAL FIBRILLATION
     Dosage: 0.5 MG, 2X/DAY (0.5MG CAPSULES BY MOUTH IN THE MORNING AND NIGHT)
     Route: 048

REACTIONS (2)
  - Malaise [Unknown]
  - Drug interaction [Unknown]
